FAERS Safety Report 5040503-2 (Version None)
Quarter: 2006Q2

REPORT INFORMATION
  Report Type: 
  Country: None (occurrence: None)
  Receive Date: 20060627
  Receipt Date: 20060627
  Transmission Date: 20061013
  Serious: Yes (Hospitalization, Disabling)
  Sender: FDA-Public Use
  Company Number: None

PATIENT
  Age: 76 Year
  Sex: Male
  Weight: 93.8946 kg

DRUGS (12)
  1. BACTRIM DS [Suspect]
     Indication: URINARY TRACT INFECTION
     Dosage: 1 TAB BID PO
     Route: 048
     Dates: start: 20060609, end: 20060611
  2. ALLOPURINOL [Concomitant]
  3. ASPIRIN [Concomitant]
  4. FELODIPINE [Concomitant]
  5. FLUNISOLIDE [Concomitant]
  6. GABAPENTIN [Concomitant]
  7. GLYBURIDE [Concomitant]
  8. LISINOPRIL [Concomitant]
  9. METOPROLOL TARTRATE [Concomitant]
  10. OXYBURTYNIN CHLORIDE [Concomitant]
  11. PRECISION XTRA-GLUCOSE-TEST STRIP [Concomitant]
  12. PRECISION XTRA METER [Concomitant]

REACTIONS (8)
  - BLOOD CREATININE INCREASED [None]
  - CONDITION AGGRAVATED [None]
  - CONFUSIONAL STATE [None]
  - DIALYSIS [None]
  - DYSARTHRIA [None]
  - HEMIPARESIS [None]
  - HYPERKALAEMIA [None]
  - NEPHRITIS INTERSTITIAL [None]
